FAERS Safety Report 4869828-8 (Version None)
Quarter: 2005Q4

REPORT INFORMATION
  Report Type: 
  Country: None (occurrence: None)
  Receive Date: 20051223
  Receipt Date: 20051212
  Transmission Date: 20060501
  Serious: Yes (Hospitalization, Congenital Anomaly)
  Sender: FDA-Public Use
  Company Number: 200506166

PATIENT
  Age: 1 Day
  Sex: Male
  Weight: 2.965 kg

DRUGS (1)
  1. TAZORAC [Suspect]
     Indication: DRUG EXPOSURE DURING PREGNANCY
     Dates: start: 20040810, end: 20040910

REACTIONS (8)
  - DRUG EXPOSURE DURING PREGNANCY [None]
  - FEEDING DISORDER NEONATAL [None]
  - LARYNGOMALACIA [None]
  - NEONATAL DISORDER [None]
  - OESOPHAGEAL ATRESIA [None]
  - SINGLE UMBILICAL ARTERY [None]
  - TRACHEO-OESOPHAGEAL FISTULA [None]
  - TRACHEOMALACIA [None]
